FAERS Safety Report 6201970-1 (Version None)
Quarter: 2009Q2

REPORT INFORMATION
  Report Type: 
  Country: None (occurrence: None)
  Receive Date: 20090526
  Receipt Date: 20090515
  Transmission Date: 20091009
  Serious: Yes (Death, Hospitalization)
  Sender: FDA-Public Use
  Company Number: A0776206A

PATIENT
  Age: 66 Year
  Sex: Male
  Weight: 88.6 kg

DRUGS (6)
  1. AVANDIA [Suspect]
     Dosage: 4MG PER DAY
     Route: 048
     Dates: start: 19991101, end: 20011001
  2. AMARYL [Concomitant]
  3. GLUCOTROL XL [Concomitant]
  4. DEMADEX [Concomitant]
  5. ZOLOFT [Concomitant]
  6. AVAPRO [Concomitant]

REACTIONS (3)
  - CEREBROVASCULAR ACCIDENT [None]
  - DEATH [None]
  - MYOCARDIAL INFARCTION [None]
